FAERS Safety Report 10648594 (Version 2)
Quarter: 2015Q1

REPORT INFORMATION
  Report Type: Spontaneous
  Country: FR (occurrence: FR)
  Receive Date: 20141212
  Receipt Date: 20150224
  Transmission Date: 20150720
  Serious: Yes (Hospitalization)
  Sender: FDA-Public Use
  Company Number: FR-SHIRE-FR201408550

PATIENT
  Age: 14 Year
  Sex: Male
  Weight: 31.3 kg

DRUGS (1)
  1. ELAPRASE [Suspect]
     Active Substance: IDURSULFASE
     Indication: MUCOPOLYSACCHARIDOSIS II
     Dosage: 18 MG (3 VIALS), 1X/WEEK
     Route: 041
     Dates: start: 20141126, end: 20141126

REACTIONS (6)
  - Hyperthermia [Recovered/Resolved]
  - Cyanosis [Recovered/Resolved]
  - Infusion related reaction [Recovered/Resolved]
  - General physical condition abnormal [Recovered/Resolved]
  - Tremor [Recovered/Resolved]
  - Dyspnoea [Recovered/Resolved]

NARRATIVE: CASE EVENT DATE: 20141126
